FAERS Safety Report 4840635-5 (Version None)
Quarter: 2005Q4

REPORT INFORMATION
  Report Type: 
  Country: None (occurrence: None)
  Receive Date: 20051125
  Receipt Date: 20051117
  Transmission Date: 20060501
  Serious: Yes (Other)
  Sender: FDA-Public Use
  Company Number: 200512644BWH

PATIENT
  Age: 37 Year
  Sex: Male

DRUGS (1)
  1. AVELOX [Suspect]
     Indication: TONSILLITIS

REACTIONS (2)
  - BLOOD GLUCOSE INCREASED [None]
  - DYSPNOEA [None]
